FAERS Safety Report 25714334 (Version 1)
Quarter: 2025Q3

REPORT INFORMATION
  Report Type: Other
  Country: CA (occurrence: CA)
  Receive Date: 20250822
  Receipt Date: 20250822
  Transmission Date: 20251020
  Serious: Yes (Hospitalization, Other)
  Sender: APOTEX
  Company Number: CA-PGRTD-001147844

PATIENT
  Age: 86 Year
  Sex: Female
  Weight: 32 kg

DRUGS (14)
  1. NAPROXEN [Suspect]
     Active Substance: NAPROXEN
     Indication: Pericarditis
     Route: 048
  2. APIXABAN [Suspect]
     Active Substance: APIXABAN
     Indication: Pulmonary embolism
     Route: 065
  3. COLCHICINE [Suspect]
     Active Substance: COLCHICINE
     Indication: Pericarditis
     Route: 048
  4. ACETAMINOPHEN [Concomitant]
     Active Substance: ACETAMINOPHEN
     Route: 065
  5. AMLODIPINE [Concomitant]
     Active Substance: AMLODIPINE BESYLATE
     Route: 065
  6. AZITHROMYCIN [Concomitant]
     Active Substance: AZITHROMYCIN
     Route: 065
  7. CALCIUM CARBONATE [Concomitant]
     Active Substance: CALCIUM CARBONATE
     Route: 065
  8. LOPERAMIDE [Concomitant]
     Active Substance: LOPERAMIDE
  9. MIRTAZAPINE [Concomitant]
     Active Substance: MIRTAZAPINE
     Route: 065
  10. MOMETASONE FUROATE [Concomitant]
     Active Substance: MOMETASONE FUROATE
     Route: 065
  11. RABEPRAZOLE [Concomitant]
     Active Substance: RABEPRAZOLE
     Route: 065
  12. CHOLECALCIFEROL [Concomitant]
     Active Substance: CHOLECALCIFEROL
     Route: 065
  13. MAGNESIUM [Concomitant]
     Active Substance: MAGNESIUM
     Route: 065
  14. PETROLATUM [Concomitant]
     Active Substance: PETROLATUM
     Route: 065

REACTIONS (2)
  - Ulcer [Recovering/Resolving]
  - Upper gastrointestinal haemorrhage [Recovering/Resolving]
